FAERS Safety Report 17294079 (Version 1)
Quarter: 2020Q1

REPORT INFORMATION
  Report Type: Spontaneous
  Country: US (occurrence: US)
  Receive Date: 20200121
  Receipt Date: 20200121
  Transmission Date: 20200409
  Serious: No
  Sender: FDA-Public Use
  Company Number: US-GILEAD-2020-0447324

PATIENT
  Age: 65 Year
  Sex: Male
  Weight: 65.76 kg

DRUGS (2)
  1. HARVONI [Suspect]
     Active Substance: LEDIPASVIR\SOFOSBUVIR
     Indication: HEPATITIS C
     Dosage: 1 DOSAGE FORM
     Route: 065
     Dates: start: 201707
  2. L-TRYPTOPHAN [Concomitant]
     Active Substance: TRYPTOPHAN

REACTIONS (1)
  - Weight decreased [Unknown]
